FAERS Safety Report 7576249-6 (Version None)
Quarter: 2011Q2

REPORT INFORMATION
  Report Type: 
  Country: None (occurrence: None)
  Receive Date: 20110628
  Receipt Date: 20110127
  Transmission Date: 20111010
  Serious: Yes (Hospitalization, Other)
  Sender: FDA-Public Use
  Company Number: US-BAYER-201032095NA

PATIENT
  Sex: Female
  Weight: 65.76 kg

DRUGS (5)
  1. TORADOL [Concomitant]
     Indication: PAIN
     Dosage: UNK
     Dates: start: 20070225
  2. YASMIN [Suspect]
     Indication: PRODUCT USED FOR UNKNOWN INDICATION
     Route: 048
  3. FLEXERIL [Concomitant]
     Dosage: UNK
     Dates: start: 20070225
  4. VICODIN [Concomitant]
     Dosage: UNK
     Dates: start: 20070225
  5. MORPHINE [Concomitant]
     Indication: PAIN
     Dosage: UNK
     Dates: start: 20070225

REACTIONS (21)
  - PREGNANCY [None]
  - MYOCARDIAL INFARCTION [None]
  - CEREBRAL HAEMORRHAGE [None]
  - HYPERTENSION [None]
  - GALLBLADDER DISORDER [None]
  - HEPATIC ADENOMA [None]
  - THROMBOPHLEBITIS [None]
  - EMBOLISM ARTERIAL [None]
  - THROMBOSIS [None]
  - HYPOTENSION [None]
  - DRUG EXPOSURE BEFORE PREGNANCY [None]
  - PLEURITIC PAIN [None]
  - CEREBRAL THROMBOSIS [None]
  - FIBRIN D DIMER INCREASED [None]
  - PROTHROMBIN TIME SHORTENED [None]
  - INTERNATIONAL NORMALISED RATIO INCREASED [None]
  - BENIGN HEPATIC NEOPLASM [None]
  - INTERNATIONAL NORMALISED RATIO DECREASED [None]
  - DEEP VEIN THROMBOSIS [None]
  - CHEST PAIN [None]
  - PULMONARY EMBOLISM [None]
